FAERS Safety Report 7790440-5 (Version None)
Quarter: 2011Q3

REPORT INFORMATION
  Report Type: 
  Country: None (occurrence: None)
  Receive Date: 20110930
  Receipt Date: 20110923
  Transmission Date: 20111222
  Serious: Yes (Hospitalization, Other)
  Sender: FDA-Public Use
  Company Number: IE-B.I. PHARMACEUTICALS,INC./RIDGEFIELD-2011-UK-00546UK

PATIENT
  Age: 61 Year
  Sex: Female
  Weight: 68 kg

DRUGS (3)
  1. DIFE [Concomitant]
  2. DICLOFENAC SODIUM [Concomitant]
     Indication: POSTOPERATIVE CARE
     Dosage: 100 MG
     Route: 054
     Dates: end: 20110531
  3. PRADAXA [Suspect]
     Indication: THROMBOSIS PROPHYLAXIS
     Dosage: 220 MG
     Route: 048
     Dates: start: 20110527, end: 20110601

REACTIONS (5)
  - HAEMATEMESIS [None]
  - ABDOMINAL PAIN [None]
  - RECTAL HAEMORRHAGE [None]
  - WOUND SECRETION [None]
  - DIARRHOEA [None]
